FAERS Safety Report 17265071 (Version 7)
Quarter: 2021Q4

REPORT INFORMATION
  Report Type: Report from Study
  Country: US (occurrence: US)
  Receive Date: 20200113
  Receipt Date: 20211221
  Transmission Date: 20220304
  Serious: Yes (Hospitalization, Other)
  Sender: FDA-Public Use
  Company Number: US-ABBVIE-20P-163-3230852-00

PATIENT
  Age: 64 Year
  Sex: Female

DRUGS (5)
  1. RINVOQ [Suspect]
     Active Substance: UPADACITINIB
     Indication: Rheumatoid arthritis
     Route: 048
  2. RINVOQ [Suspect]
     Active Substance: UPADACITINIB
     Route: 048
  3. RINVOQ [Suspect]
     Active Substance: UPADACITINIB
     Route: 048
  4. PFIZER-BIONTECH COVID-19 VACCINE [Concomitant]
     Active Substance: TOZINAMERAN
     Indication: COVID-19 immunisation
     Route: 030
     Dates: start: 20210218, end: 20210218
  5. PFIZER-BIONTECH COVID-19 VACCINE [Concomitant]
     Active Substance: TOZINAMERAN
     Route: 030
     Dates: start: 20210311, end: 20210311

REACTIONS (17)
  - Cerebrovascular accident [Unknown]
  - Shoulder operation [Unknown]
  - Urinary tract infection [Unknown]
  - Head discomfort [Unknown]
  - Productive cough [Not Recovered/Not Resolved]
  - Diabetes mellitus [Unknown]
  - Paraesthesia [Unknown]
  - Formication [Unknown]
  - Dyspepsia [Unknown]
  - Pain [Unknown]
  - Insomnia [Unknown]
  - Cardiac disorder [Unknown]
  - Musculoskeletal disorder [Unknown]
  - Asthenia [Unknown]
  - Balance disorder [Unknown]
  - Inflammatory marker increased [Unknown]
  - Pharyngeal disorder [Unknown]

NARRATIVE: CASE EVENT DATE: 20200101
